FAERS Safety Report 7055147-0 (Version None)
Quarter: 2010Q4

REPORT INFORMATION
  Report Type: 
  Country: None (occurrence: None)
  Receive Date: 20101020
  Receipt Date: 20101020
  Transmission Date: 20110411
  Serious: No
  Sender: FDA-Public Use
  Company Number: None

PATIENT
  Age: 51 Year
  Sex: Female

DRUGS (2)
  1. SUMATRIPTAN SUCCINATE [Suspect]
     Dates: start: 20100601
  2. SUMATRIPPLAN SUCCINATE (IMITREX) [Suspect]
     Dates: start: 20100801

REACTIONS (1)
  - DRUG INEFFECTIVE [None]
